FAERS Safety Report 20810620 (Version 1)
Quarter: 2022Q2

REPORT INFORMATION
  Report Type: Spontaneous
  Country: US (occurrence: None)
  Receive Date: 20220510
  Receipt Date: 20220510
  Transmission Date: 20220721
  Serious: Yes (Death)
  Sender: FDA-Public Use
  Company Number: None

PATIENT
  Sex: Male
  Weight: 57.15 kg

DRUGS (10)
  1. IRINOTECAN [Suspect]
     Active Substance: IRINOTECAN
     Indication: Lung neoplasm malignant
     Dosage: FREQUENCY : WEEKLY;?
     Route: 042
  2. FAMOTIDINE [Suspect]
     Active Substance: FAMOTIDINE
     Dosage: FREQUENCY : WEEKLY;?
     Route: 042
  3. ASPIRIN [Concomitant]
     Active Substance: ASPIRIN
  4. STOVASTATIN [Concomitant]
  5. CARVEDILOL [Concomitant]
     Active Substance: CARVEDILOL
  6. METOPROLOL [Concomitant]
     Active Substance: METOPROLOL
  7. PANOPROAZOLE [Concomitant]
  8. PERCOCET [Concomitant]
  9. ONDANSETRON [Concomitant]
  10. DEXAMETHASONE [Concomitant]

REACTIONS (1)
  - Death [None]
